FAERS Safety Report 8979047 (Version 2)
Quarter: 2013Q2

REPORT INFORMATION
  Report Type: Spontaneous
  Country: US (occurrence: US)
  Receive Date: 20121221
  Receipt Date: 20130528
  Transmission Date: 20140414
  Serious: Yes (Hospitalization, Disabling, Other)
  Sender: FDA-Public Use
  Company Number: US-CELGENEUS-163-21880-12112623

PATIENT
  Age: 77 Year
  Sex: Male

DRUGS (21)
  1. REVLIMID [Suspect]
     Indication: MYELODYSPLASTIC SYNDROME
     Dosage: 10 MILLIGRAM
     Route: 048
     Dates: start: 20120905
  2. REVLIMID [Suspect]
     Dosage: 5 MILLIGRAM
     Route: 048
     Dates: start: 20121018, end: 20121106
  3. REVLIMID [Suspect]
     Dosage: 5 MILLIGRAM
     Route: 048
     Dates: start: 20121116
  4. CRESTOR [Concomitant]
     Indication: PRODUCT USED FOR UNKNOWN INDICATION
     Dosage: 5 MILLIGRAM
     Route: 065
  5. METOPROLOL TARTRATE [Concomitant]
     Indication: PRODUCT USED FOR UNKNOWN INDICATION
     Route: 065
  6. MULTIVITAMINS [Concomitant]
     Indication: PRODUCT USED FOR UNKNOWN INDICATION
     Route: 065
  7. NIACIN [Concomitant]
     Indication: PRODUCT USED FOR UNKNOWN INDICATION
     Dosage: 500 MILLIGRAM
     Route: 065
  8. PROTONIX [Concomitant]
     Indication: PRODUCT USED FOR UNKNOWN INDICATION
     Dosage: 40 MILLIGRAM
     Route: 065
  9. SPIRONOLACTONE [Concomitant]
     Indication: PRODUCT USED FOR UNKNOWN INDICATION
     Dosage: 50
     Route: 065
  10. SPIRONOLACTONE [Concomitant]
     Dosage: 25 MILLIGRAM
     Route: 065
  11. PROCRIT [Concomitant]
     Indication: PRODUCT USED FOR UNKNOWN INDICATION
     Dosage: 60,000 UNITS
     Route: 065
     Dates: start: 20121025
  12. PROCRIT [Concomitant]
     Dosage: 60,000 UNITS
     Route: 065
     Dates: start: 20121101
  13. PROCRIT [Concomitant]
     Dosage: 40,000 UNITS
     Route: 065
     Dates: start: 20121103
  14. PLAVIX [Concomitant]
     Indication: PRODUCT USED FOR UNKNOWN INDICATION
     Dosage: 75 MILLIGRAM
     Route: 048
  15. LISINOPRIL [Concomitant]
     Indication: PRODUCT USED FOR UNKNOWN INDICATION
     Dosage: 2.5 MILLIGRAM
     Route: 065
  16. METOPROLOL SUCCINATE [Concomitant]
     Indication: PRODUCT USED FOR UNKNOWN INDICATION
     Dosage: 100 MILLIGRAM
     Route: 065
  17. PROBIOTIC [Concomitant]
     Indication: PRODUCT USED FOR UNKNOWN INDICATION
     Route: 065
  18. ZOFRAN [Concomitant]
     Indication: NAUSEA
     Dosage: 16 MILLIGRAM
     Route: 041
  19. ZOFRAN [Concomitant]
     Indication: VOMITING
  20. HYDROCODONE [Concomitant]
     Indication: PAIN
     Route: 065
  21. REGLAN [Concomitant]
     Indication: PRODUCT USED FOR UNKNOWN INDICATION
     Route: 065

REACTIONS (7)
  - Impaired gastric emptying [Recovering/Resolving]
  - Decreased appetite [Unknown]
  - Anaemia [Unknown]
  - Sepsis [Recovered/Resolved]
  - Weight decreased [Not Recovered/Not Resolved]
  - Enterocolitis infectious [Recovering/Resolving]
  - Arthritis [Unknown]
